FAERS Safety Report 7444866-X (Version None)
Quarter: 2011Q2

REPORT INFORMATION
  Report Type: 
  Country: None (occurrence: None)
  Receive Date: 20110429
  Receipt Date: 20110414
  Transmission Date: 20111010
  Serious: Yes (Hospitalization, Other)
  Sender: FDA-Public Use
  Company Number: NL-US-EMD SERONO, INC.-7012040

PATIENT
  Sex: Female
  Weight: 85 kg

DRUGS (13)
  1. VERAPAMIL [Concomitant]
     Indication: CARDIAC DISORDER
     Route: 048
     Dates: start: 20000101
  2. SINGULAIR [Concomitant]
     Indication: HYPERSENSITIVITY
     Route: 048
     Dates: start: 19950101
  3. ACETAMINOPHEN W/ CODEINE [Concomitant]
     Indication: PAIN
     Route: 048
  4. QUINAPRIL [Concomitant]
     Indication: HYPERTENSION
     Route: 048
     Dates: start: 20000101, end: 20101123
  5. AMILORIDE-HYDROCHLOORTHIAZID [Concomitant]
     Indication: HYPERTENSION
     Dates: start: 20000101
  6. METFORMIN HYDROCHLORIDE [Concomitant]
     Indication: DIABETES MELLITUS
     Dates: start: 20091201, end: 20100901
  7. TRAMADOL [Concomitant]
     Indication: PAIN
  8. REBIF [Suspect]
     Indication: MULTIPLE SCLEROSIS
     Route: 058
     Dates: start: 20100607, end: 20101118
  9. LEVOCETIRIZINE DIHYDROCHLORIDE [Concomitant]
     Indication: HYPERSENSITIVITY
     Route: 048
     Dates: start: 19950101
  10. ACETIC ACID [Concomitant]
     Indication: PLATELET AGGREGATION INHIBITION
     Dates: start: 20100609
  11. SERETIDE DISKUS [Concomitant]
     Dates: start: 19900101, end: 20100101
  12. AMITRIPTYLINE [Concomitant]
     Indication: MUSCLE SPASMS
     Dates: start: 20000101
  13. RIVOTRIL [Concomitant]
     Indication: MUSCLE SPASMS
     Route: 048
     Dates: start: 20000101

REACTIONS (8)
  - INFLUENZA LIKE ILLNESS [None]
  - LOSS OF CONSCIOUSNESS [None]
  - VOMITING [None]
  - ARRHYTHMIA [None]
  - NAUSEA [None]
  - MALAISE [None]
  - ERYTHEMA [None]
  - INJECTION SITE NECROSIS [None]
